FAERS Safety Report 21962849 (Version 1)
Quarter: 2023Q1

REPORT INFORMATION
  Report Type: Report from Study
  Country: US (occurrence: US)
  Receive Date: 20230207
  Receipt Date: 20230207
  Transmission Date: 20230418
  Serious: Yes (Other)
  Sender: FDA-Public Use
  Company Number: US-BIOVITRUM-2022US12779

PATIENT
  Sex: Female

DRUGS (29)
  1. KINERET [Suspect]
     Active Substance: ANAKINRA
     Indication: Product used for unknown indication
     Dates: start: 20221022
  2. MAGNESIUM [Concomitant]
     Active Substance: MAGNESIUM
     Dosage: OTC
  3. GUAIFENESIN [Concomitant]
     Active Substance: GUAIFENESIN
     Dosage: OTC/PRN
  4. CAMPHOR;MENTHOL [Concomitant]
     Dosage: OTC/PRN
  5. DIPHENHYDRAMINE-PHENYLEPHRINE-ACETAMINOPHEN [Concomitant]
     Dosage: OTC/PRN
  6. PHENYLEPHRINE-DEXTROMETHORPHAN [Concomitant]
     Dosage: OTC/PRN
  7. LOPERAMIDE [Concomitant]
     Active Substance: LOPERAMIDE
     Dosage: OTC/PRN
  8. LORATADINE [Concomitant]
     Active Substance: LORATADINE
     Dosage: OTC
  9. ALBUTEROL [Concomitant]
     Active Substance: ALBUTEROL
     Dosage: PRN
  10. CYCLOBENZAPRINE [Concomitant]
     Active Substance: CYCLOBENZAPRINE
     Dosage: PRN
  11. FIBER [Concomitant]
     Dosage: OTC
  12. ASCORBIC ACID [Concomitant]
     Active Substance: ASCORBIC ACID
     Dosage: OTC
  13. FERROUS FUMARATE-FOLIC ACID-CYANOCOBALAMIN-ASCORBIC ACID [Concomitant]
     Dosage: OTC
  14. ESTADIOL [Concomitant]
  15. PROMETHAZINE [Concomitant]
     Active Substance: PROMETHAZINE HYDROCHLORIDE
  16. TRAZODONE HYDROCHLORIDE [Concomitant]
     Active Substance: TRAZODONE HYDROCHLORIDE
  17. VENLAFAXINE HYDROCHLORIDE [Concomitant]
     Active Substance: VENLAFAXINE HYDROCHLORIDE
  18. BUSPIRONE [Concomitant]
     Active Substance: BUSPIRONE HYDROCHLORIDE
  19. AMLODIPINE BESYLATE [Concomitant]
     Active Substance: AMLODIPINE BESYLATE
  20. BUPROPION HYDROCHLORIDE [Concomitant]
     Active Substance: BUPROPION HYDROCHLORIDE
  21. TIZANIDINE [Concomitant]
     Active Substance: TIZANIDINE
  22. DICYCLOMINE [Concomitant]
     Active Substance: DICYCLOMINE HYDROCHLORIDE
  23. VALSARTAN [Concomitant]
     Active Substance: VALSARTAN
  24. ROPINIROLE HYDROCHLORIDE [Concomitant]
     Active Substance: ROPINIROLE HYDROCHLORIDE
  25. HYDROXYCHLOROQUINE SULFATE [Concomitant]
     Active Substance: HYDROXYCHLOROQUINE SULFATE
  26. LEVOTHYROXINE [Concomitant]
     Active Substance: LEVOTHYROXINE
  27. GAMMAGARD [Concomitant]
     Active Substance: HUMAN IMMUNOGLOBULIN G
  28. GABAPENTIN [Concomitant]
     Active Substance: GABAPENTIN
  29. BUPRENORPHINE HYDROCHLORIDE [Concomitant]
     Active Substance: BUPRENORPHINE HYDROCHLORIDE

REACTIONS (10)
  - Renal injury [Unknown]
  - Nerve compression [Unknown]
  - Intervertebral disc disorder [Unknown]
  - Injection site reaction [Unknown]
  - Injection site pruritus [Unknown]
  - Injection site mass [Unknown]
  - Urticaria [Not Recovered/Not Resolved]
  - Injection site urticaria [Unknown]
  - Injection site inflammation [Unknown]
  - Drug ineffective [Unknown]
